FAERS Safety Report 6767250-0 (Version None)
Quarter: 2010Q2

REPORT INFORMATION
  Report Type: 
  Country: None (occurrence: None)
  Receive Date: 20100614
  Receipt Date: 20100604
  Transmission Date: 20101027
  Serious: Yes (Hospitalization)
  Sender: FDA-Public Use
  Company Number: IT-ABBOTT-10P-083-0649438-00

PATIENT
  Sex: Female

DRUGS (2)
  1. MACLADIN [Suspect]
     Indication: SOFT TISSUE INFECTION
     Route: 048
     Dates: start: 20100501, end: 20100507
  2. ZYLORIC [Concomitant]
     Indication: DRUG USE FOR UNKNOWN INDICATION
     Dates: start: 20100508, end: 20100512

REACTIONS (2)
  - DRUG EFFECT DECREASED [None]
  - PRURIGO [None]
